FAERS Safety Report 6152436-9 (Version None)
Quarter: 2009Q2

REPORT INFORMATION
  Report Type: 
  Country: None (occurrence: None)
  Receive Date: 20090413
  Receipt Date: 20090310
  Transmission Date: 20091009
  Serious: No
  Sender: FDA-Public Use
  Company Number: US-BAYER-200915239NA

PATIENT
  Age: 22 Year
  Sex: Female

DRUGS (4)
  1. YAZ [Suspect]
     Indication: OVARIAN CYST
     Route: 048
     Dates: start: 20081201
  2. PREDNISONE [Concomitant]
  3. KEFLEX [Concomitant]
  4. ANTIHISTAMINE [Concomitant]

REACTIONS (2)
  - METRORRHAGIA [None]
  - NO ADVERSE EVENT [None]
